FAERS Safety Report 11522833 (Version 1)
Quarter: 2015Q3

REPORT INFORMATION
  Report Type: Spontaneous
  Country: CA (occurrence: CA)
  Receive Date: 20150918
  Receipt Date: 20150918
  Transmission Date: 20151125
  Serious: Yes (Death, Hospitalization)
  Sender: FDA-Public Use
  Company Number: CA-ACTELION-A-NJ2015-123999

PATIENT
  Age: 57 Year
  Sex: Female

DRUGS (9)
  1. PREDNISONE. [Concomitant]
     Active Substance: PREDNISONE
  2. ASA [Concomitant]
     Active Substance: ASPIRIN
     Dosage: 80 UNK, UNK
  3. AMLODIPINE [Concomitant]
     Active Substance: AMLODIPINE BESYLATE
  4. LASIX [Concomitant]
     Active Substance: FUROSEMIDE
  5. WARFARIN [Concomitant]
     Active Substance: WARFARIN
  6. POTASSIUM [Concomitant]
     Active Substance: POTASSIUM
  7. CARIPUL [Suspect]
     Active Substance: EPOPROSTENOL
     Indication: PULMONARY ARTERIAL HYPERTENSION
     Dosage: 3 MG, QD
     Route: 042
     Dates: start: 20131207
  8. RABEPRAZOLE [Concomitant]
     Active Substance: RABEPRAZOLE
  9. SPIROLACTON [Concomitant]

REACTIONS (1)
  - Sudden death [Fatal]

NARRATIVE: CASE EVENT DATE: 20150904
